FAERS Safety Report 5721466-0 (Version None)
Quarter: 2008Q2

REPORT INFORMATION
  Report Type: 
  Country: None (occurrence: None)
  Receive Date: 20080424
  Receipt Date: 20080417
  Transmission Date: 20081010
  Serious: No
  Sender: FDA-Public Use
  Company Number: 001#2#2008-00253

PATIENT
  Sex: Male

DRUGS (1)
  1. NEUPRO [Suspect]
     Dosage: 8 MG/24H (8 MG/24H 1 IN 1 DAY(S)) TRANSDERMAL
     Route: 062

REACTIONS (2)
  - CONDITION AGGRAVATED [None]
  - POOR QUALITY DRUG ADMINISTERED [None]
